FAERS Safety Report 24887698 (Version 1)
Quarter: 2025Q1

REPORT INFORMATION
  Report Type: Report from Study
  Country: US (occurrence: US)
  Receive Date: 20250127
  Receipt Date: 20250127
  Transmission Date: 20250409
  Serious: Yes (Death, Hospitalization, Other)
  Sender: PFIZER
  Company Number: US-PFIZER INC-PV202400027181

PATIENT
  Age: 81 Year
  Sex: Female

DRUGS (2)
  1. VYNDAMAX [Suspect]
     Active Substance: TAFAMIDIS
     Indication: Cardiac amyloidosis
     Dosage: 61 MG, 1X/DAY
     Route: 048
     Dates: start: 20230630
  2. VYNDAMAX [Suspect]
     Active Substance: TAFAMIDIS

REACTIONS (4)
  - Death [Fatal]
  - Pneumonia [Unknown]
  - Urinary tract infection [Unknown]
  - Dementia [Unknown]

NARRATIVE: CASE EVENT DATE: 20231201
